FAERS Safety Report 5114812-2 (Version None)
Quarter: 2006Q3

REPORT INFORMATION
  Report Type: 
  Country: None (occurrence: None)
  Receive Date: 20060922
  Receipt Date: 20060922
  Transmission Date: 20061208
  Serious: Yes (Disabling, Other)
  Sender: FDA-Public Use
  Company Number: None

PATIENT
  Age: 32 Year
  Sex: Male
  Weight: 120.2032 kg

DRUGS (2)
  1. CYCLOPENTOLATE HCL [Suspect]
     Indication: EYE INFECTION
     Dates: start: 20060829, end: 20060831
  2. GATIFLOXICIN [Suspect]
     Indication: EYE INFECTION
     Dates: start: 20060829, end: 20060831

REACTIONS (1)
  - HEART RATE INCREASED [None]
